FAERS Safety Report 5690562-9 (Version None)
Quarter: 2008Q2

REPORT INFORMATION
  Report Type: 
  Country: None (occurrence: None)
  Receive Date: 20080401
  Receipt Date: 19821215
  Transmission Date: 20081010
  Serious: Yes (Death, Disabling, Congenital Anomaly, Other)
  Sender: FDA-Public Use
  Company Number: US-ROCHE-820200002001

PATIENT
  Sex: Male
  Weight: 3.8 kg

DRUGS (1)
  1. ACCUTANE [Suspect]
     Dates: start: 19820924, end: 19821008

REACTIONS (7)
  - DEATH [None]
  - EAR MALFORMATION [None]
  - ENCEPHALOPATHY [None]
  - OPTIC NERVE HYPOPLASIA [None]
  - SKULL FRACTURE [None]
  - TRANSPOSITION OF THE GREAT VESSELS [None]
  - VENTRICULAR SEPTAL DEFECT [None]
